FAERS Safety Report 6816055-0 (Version None)
Quarter: 2010Q3

REPORT INFORMATION
  Report Type: 
  Country: None (occurrence: None)
  Receive Date: 20100705
  Receipt Date: 20100621
  Transmission Date: 20110219
  Serious: No
  Sender: FDA-Public Use
  Company Number: US-BIOGENIDEC-2010BI020660

PATIENT
  Age: 48 Year
  Sex: Female

DRUGS (7)
  1. AVONEX [Suspect]
     Indication: MULTIPLE SCLEROSIS
     Route: 030
     Dates: start: 19980810, end: 20030830
  2. AVONEX [Suspect]
     Route: 030
     Dates: start: 20030830
  3. RENAGEN DTX [Concomitant]
     Indication: SUPPLEMENTATION THERAPY
  4. PHYTO COMPLETE [Concomitant]
     Indication: MEDICAL DIET
  5. KAPREX A1 [Concomitant]
     Indication: MEDICAL DIET
  6. POTASSIUM CHLORIDE [Concomitant]
     Indication: MINERAL SUPPLEMENTATION
  7. NORTRIPTYLINE [Concomitant]
     Indication: COGNITIVE DISORDER

REACTIONS (8)
  - BALANCE DISORDER [None]
  - DRUG HYPERSENSITIVITY [None]
  - FOOD ALLERGY [None]
  - GAIT DISTURBANCE [None]
  - GLOBULINS INCREASED [None]
  - INFLAMMATION [None]
  - PROTEIN TOTAL INCREASED [None]
  - SEASONAL ALLERGY [None]
